FAERS Safety Report 22241612 (Version 2)
Quarter: 2023Q2

REPORT INFORMATION
  Report Type: Spontaneous
  Country: DE (occurrence: DE)
  Receive Date: 20230421
  Receipt Date: 20230427
  Transmission Date: 20230722
  Serious: Yes (Hospitalization)
  Sender: FDA-Public Use
  Company Number: DE-002147023-NVSC2023DE089143

PATIENT
  Sex: Male

DRUGS (2)
  1. ELTROMBOPAG OLAMINE [Suspect]
     Active Substance: ELTROMBOPAG OLAMINE
     Indication: Immune thrombocytopenia
     Dosage: 25 MG (STRENGTH 25 MG)
     Route: 065
     Dates: start: 20230401, end: 202304
  2. ELTROMBOPAG OLAMINE [Suspect]
     Active Substance: ELTROMBOPAG OLAMINE
     Dosage: 50 MG (STRENGTH 50 MG)
     Route: 065
     Dates: start: 202304

REACTIONS (4)
  - Pneumonia [Unknown]
  - Musculoskeletal chest pain [Unknown]
  - Electrocardiogram abnormal [Unknown]
  - Pulmonary embolism [Unknown]

NARRATIVE: CASE EVENT DATE: 20230401
